FAERS Safety Report 8602616 (Version 3)
Quarter: 2013Q3

REPORT INFORMATION
  Report Type: Report from Study
  Country: DE (occurrence: DE)
  Receive Date: 20120607
  Receipt Date: 20130805
  Transmission Date: 20140515
  Serious: Yes (Other)
  Sender: FDA-Public Use
  Company Number: DE-UCBSA-058549

PATIENT
  Sex: Female

DRUGS (7)
  1. CIMZIA [Suspect]
     Indication: RHEUMATOID ARTHRITIS
     Dates: start: 20100930, end: 20111115
  2. PREDNISOLON [Concomitant]
     Indication: RHEUMATOID ARTHRITIS
  3. CALCIGEN D [Concomitant]
     Indication: OSTEOPOROSIS
  4. PANTOPRAZOL [Concomitant]
     Indication: GASTRIC ULCER
  5. RANTUDIL RET [Concomitant]
     Indication: PAIN
  6. ARAVA [Concomitant]
     Indication: RHEUMATOID ARTHRITIS
     Dates: start: 20061026
  7. TILIDIN [Concomitant]
     Indication: PAIN

REACTIONS (2)
  - Abscess oral [Recovered/Resolved]
  - Psoriasis [Recovered/Resolved]
